FAERS Safety Report 6231664-8 (Version None)
Quarter: 2009Q2

REPORT INFORMATION
  Report Type: 
  Country: None (occurrence: None)
  Receive Date: 20090616
  Receipt Date: 20090608
  Transmission Date: 20091009
  Serious: Yes (Death, Hospitalization, Other)
  Sender: FDA-Public Use
  Company Number: ES-MERCK-0904ESP00066

PATIENT
  Age: 60 Year
  Sex: Male

DRUGS (2)
  1. INVANZ [Suspect]
     Indication: LUNG INFECTION
     Route: 042
     Dates: start: 20090401, end: 20090403
  2. AMIKACIN [Suspect]
     Indication: SEPSIS
     Route: 042
     Dates: start: 20090403, end: 20090405

REACTIONS (5)
  - ACUTE RESPIRATORY DISTRESS SYNDROME [None]
  - CONVULSION [None]
  - PNEUMONIA [None]
  - RENAL FAILURE [None]
  - SEPTIC SHOCK [None]
